FAERS Safety Report 17190864 (Version 1)
Quarter: 2019Q4

REPORT INFORMATION
  Report Type: Spontaneous
  Country: US (occurrence: US)
  Receive Date: 20191220
  Receipt Date: 20191220
  Transmission Date: 20200122
  Serious: Yes (Hospitalization)
  Sender: FDA-Public Use
  Company Number: None

PATIENT
  Age: 67 Year
  Sex: Female
  Weight: 76 kg

DRUGS (2)
  1. DULAXOTINE 20 MG [Concomitant]
     Dates: start: 20191008, end: 20191010
  2. DULOXETINE. [Suspect]
     Active Substance: DULOXETINE
     Indication: HYPONATRAEMIA
     Route: 048
     Dates: start: 20191008, end: 20191010

REACTIONS (2)
  - Seizure [None]
  - Hyponatraemia [None]

NARRATIVE: CASE EVENT DATE: 20191010
